FAERS Safety Report 8060214-9 (Version None)
Quarter: 2012Q1

REPORT INFORMATION
  Report Type: 
  Country: None (occurrence: None)
  Receive Date: 20120120
  Receipt Date: 20111004
  Transmission Date: 20120608
  Serious: No
  Sender: FDA-Public Use
  Company Number: US-NOVEN-11US003368

PATIENT
  Sex: Male
  Weight: 113.38 kg

DRUGS (1)
  1. FENTANYL [Suspect]
     Indication: ABDOMINAL PAIN
     Dosage: 100 UG, Q72H
     Route: 062
     Dates: start: 20110901

REACTIONS (3)
  - PRODUCT QUALITY ISSUE [None]
  - APPLICATION SITE RASH [None]
  - DRUG ADMINISTRATION ERROR [None]
